FAERS Safety Report 6237915-8 (Version None)
Quarter: 2009Q2

REPORT INFORMATION
  Report Type: 
  Country: None (occurrence: None)
  Receive Date: 20090621
  Receipt Date: 20090609
  Transmission Date: 20091009
  Serious: Yes (Other)
  Sender: FDA-Public Use
  Company Number: PHHY2009CA20617

PATIENT
  Sex: Female

DRUGS (7)
  1. CLOZARIL [Suspect]
     Indication: PSYCHOTIC DISORDER
     Dosage: 100 MG AM + 225 MG PM
     Route: 048
     Dates: start: 20050101
  2. CLOZARIL [Suspect]
     Dosage: UNK
  3. LORAZEPAM [Concomitant]
     Dosage: 0.5 MG - 1 MG, PRN
  4. DOXORUBICIN HCL [Concomitant]
     Dosage: 108 MG, QW
     Route: 042
  5. ONDANSETRON [Concomitant]
     Dosage: PRN
  6. DEXAMETHASONE [Concomitant]
     Dosage: PRN
  7. CYCLOPHOSPHAMIDE [Concomitant]
     Dosage: UNK
     Dates: start: 20090403, end: 20090514

REACTIONS (7)
  - AGRANULOCYTOSIS [None]
  - BODY TEMPERATURE INCREASED [None]
  - BREAST CANCER [None]
  - INSOMNIA [None]
  - NEUTROPENIA [None]
  - SURGERY [None]
  - WHITE BLOOD CELL COUNT DECREASED [None]
